FAERS Safety Report 5354539-5 (Version None)
Quarter: 2007Q2

REPORT INFORMATION
  Report Type: 
  Country: None (occurrence: None)
  Receive Date: 20070612
  Receipt Date: 20070531
  Transmission Date: 20071010
  Serious: No
  Sender: FDA-Public Use
  Company Number: US-ASTRAZENECA-2006UW11317

PATIENT
  Age: 52 Year
  Sex: Male
  Weight: 94.1 kg

DRUGS (6)
  1. SEROQUEL [Suspect]
     Indication: POST-TRAUMATIC STRESS DISORDER
     Route: 048
     Dates: start: 20050101, end: 20060101
  2. SEROQUEL [Suspect]
     Indication: DEPRESSION
     Route: 048
     Dates: start: 20050101, end: 20060101
  3. CLOZARIL [Concomitant]
  4. GEODON [Concomitant]
  5. RISPERDAL [Concomitant]
  6. THORAZINE [Concomitant]
     Dates: start: 19770101

REACTIONS (1)
  - HYPERGLYCAEMIA [None]
